FAERS Safety Report 6591054-5 (Version None)
Quarter: 2010Q1

REPORT INFORMATION
  Report Type: 
  Country: None (occurrence: None)
  Receive Date: 20100212
  Receipt Date: 20100126
  Transmission Date: 20100710
  Serious: Yes (Hospitalization)
  Sender: FDA-Public Use
  Company Number: 238594K09USA

PATIENT
  Age: 52 Year
  Sex: Female

DRUGS (10)
  1. REBIF [Suspect]
     Indication: MULTIPLE SCLEROSIS
     Dosage: 44 MCG, 3 IN 1 WEEKS, SUBCUTANEOUS
     Route: 058
     Dates: start: 20060908, end: 20090710
  2. REBIF [Suspect]
     Indication: MULTIPLE SCLEROSIS
     Dosage: 44 MCG, 3 IN 1 WEEKS, SUBCUTANEOUS
     Route: 058
     Dates: start: 20090717
  3. THYROID TAB [Concomitant]
  4. RESTORIL [Concomitant]
  5. PROZAC [Concomitant]
  6. PROVIGIL [Concomitant]
  7. OXYCONTIN [Concomitant]
  8. BACLOFEN [Concomitant]
  9. SIMVASTATIN [Concomitant]
  10. LISINOPRIL [Concomitant]

REACTIONS (5)
  - HEADACHE [None]
  - INFECTION [None]
  - POST LUMBAR PUNCTURE SYNDROME [None]
  - URINARY RETENTION [None]
  - URINARY TRACT INFECTION [None]
